FAERS Safety Report 23569994 (Version 2)
Quarter: 2024Q3

REPORT INFORMATION
  Report Type: Spontaneous
  Country: US (occurrence: US)
  Receive Date: 20240227
  Receipt Date: 20240919
  Transmission Date: 20241017
  Serious: Yes (Other)
  Sender: MYLAN
  Company Number: US-MYLANLABS-2024M1017708

PATIENT
  Age: 69 Year
  Sex: Male

DRUGS (12)
  1. EPLERENONE [Interacting]
     Active Substance: EPLERENONE
     Indication: Heart failure with reduced ejection fraction
     Dosage: 50 MILLIGRAM, QD
     Route: 065
  2. EPLERENONE [Interacting]
     Active Substance: EPLERENONE
     Indication: Cardiac failure chronic
  3. METOPROLOL [Interacting]
     Active Substance: METOPROLOL
     Indication: Heart failure with reduced ejection fraction
     Dosage: 50 MILLIGRAM, QD
     Route: 065
  4. METOPROLOL [Interacting]
     Active Substance: METOPROLOL
     Indication: Cardiac failure chronic
     Dosage: 12.5 MILLIGRAM, QD (DOSE REDUCED)
     Route: 065
  5. VALSARTAN [Suspect]
     Active Substance: VALSARTAN
     Indication: Cardiac failure chronic
     Dosage: 40 MILLIGRAM, BID
     Route: 065
  6. VALSARTAN [Suspect]
     Active Substance: VALSARTAN
     Dosage: 40 MILLIGRAM, QD
     Route: 065
  7. SACUBITRIL\VALSARTAN [Interacting]
     Active Substance: SACUBITRIL\VALSARTAN
     Indication: Heart failure with reduced ejection fraction
     Dosage: UNK, BID
     Route: 065
  8. SACUBITRIL\VALSARTAN [Interacting]
     Active Substance: SACUBITRIL\VALSARTAN
     Indication: Cardiac failure chronic
  9. EMPAGLIFLOZIN [Interacting]
     Active Substance: EMPAGLIFLOZIN
     Indication: Heart failure with reduced ejection fraction
     Dosage: 10 MILLIGRAM, QD
     Route: 065
  10. EMPAGLIFLOZIN [Interacting]
     Active Substance: EMPAGLIFLOZIN
     Indication: Type 2 diabetes mellitus
  11. TIRZEPATIDE [Interacting]
     Active Substance: TIRZEPATIDE
     Indication: Type 2 diabetes mellitus
     Dosage: 7.5 MILLIGRAM, QW
     Route: 065
  12. TIRZEPATIDE [Interacting]
     Active Substance: TIRZEPATIDE
     Indication: Weight decreased

REACTIONS (4)
  - Drug interaction [Recovered/Resolved]
  - Hypotension [Recovered/Resolved]
  - Hypovolaemia [Unknown]
  - Acute kidney injury [Recovering/Resolving]
